FAERS Safety Report 5371105-6 (Version None)
Quarter: 2007Q2

REPORT INFORMATION
  Report Type: 
  Country: None (occurrence: None)
  Receive Date: 20070622
  Receipt Date: 20070605
  Transmission Date: 20071010
  Serious: Yes (Hospitalization)
  Sender: FDA-Public Use
  Company Number: S07-FRA-02579-01

PATIENT
  Age: 63 Year
  Sex: Male

DRUGS (5)
  1. ESCITALOPRAM [Suspect]
     Indication: DEPRESSION
     Dosage: TABLET UNK  PO
     Route: 048
     Dates: end: 20070423
  2. GEMZAR [Concomitant]
  3. TAXOL [Concomitant]
  4. VALSARTAN [Concomitant]
  5. ASPEGIC 1000 [Concomitant]

REACTIONS (3)
  - CONVULSION [None]
  - HYPONATRAEMIA [None]
  - NERVOUS SYSTEM DISORDER [None]
